FAERS Safety Report 5225040-4 (Version None)
Quarter: 2007Q1

REPORT INFORMATION
  Report Type: 
  Country: None (occurrence: None)
  Receive Date: 20070131
  Receipt Date: 20070125
  Transmission Date: 20070707
  Serious: Yes (Disabling)
  Sender: FDA-Public Use
  Company Number: JP-JPN-A200605618

PATIENT
  Age: 40 Year
  Sex: Male

DRUGS (7)
  1. PAXIL [Suspect]
     Indication: DEPRESSION
     Route: 048
     Dates: start: 20060410
  2. MIRADOL [Concomitant]
     Indication: DEPRESSION
     Dosage: 450MG PER DAY
     Route: 048
     Dates: start: 20060410, end: 20060425
  3. LEXOTAN [Concomitant]
     Dosage: 1MG THREE TIMES PER DAY
     Route: 048
  4. HALCION [Concomitant]
     Dosage: .25MG PER DAY
     Route: 048
  5. MIRADOL [Concomitant]
     Dosage: 225MG PER DAY
     Route: 048
     Dates: start: 20060426
  6. LEXOTAN [Concomitant]
     Indication: DEPRESSION
     Dosage: 9MG PER DAY
     Route: 048
     Dates: start: 20060426
  7. HALCION [Concomitant]
     Indication: DEPRESSION
     Dosage: .25MG PER DAY
     Route: 048
     Dates: start: 20060607

REACTIONS (8)
  - AMNESIA [None]
  - ASTHENIA [None]
  - DEPRESSION [None]
  - DIZZINESS [None]
  - DRUG WITHDRAWAL SYNDROME [None]
  - DYSAESTHESIA [None]
  - HEADACHE [None]
  - SOMNOLENCE [None]
